FAERS Safety Report 9618950 (Version 2)
Quarter: 2013Q4

REPORT INFORMATION
  Report Type: Spontaneous
  Country: US (occurrence: US)
  Receive Date: 20131014
  Receipt Date: 20131127
  Transmission Date: 20140711
  Serious: Yes (Hospitalization, Other)
  Sender: FDA-Public Use
  Company Number: US-PFIZER INC-2013291490

PATIENT
  Age: 11 Year
  Sex: Female
  Weight: 29.8 kg

DRUGS (4)
  1. ENBREL [Suspect]
     Indication: JUVENILE IDIOPATHIC ARTHRITIS
     Dosage: 17.5 MG, WEEKLY
     Route: 058
     Dates: start: 20130418, end: 201309
  2. METHOTREXATE SODIUM [Suspect]
     Indication: OSTEOARTHRITIS
     Dosage: 15 MG, WEEKLY
     Route: 048
     Dates: start: 20130408, end: 201308
  3. METHOTREXATE SODIUM [Suspect]
     Indication: JUVENILE IDIOPATHIC ARTHRITIS
  4. PREDNISONE [Concomitant]
     Dosage: UNK
     Dates: end: 201308

REACTIONS (15)
  - Brain mass [Unknown]
  - Pineal neoplasm [Unknown]
  - CNS germinoma [Unknown]
  - Astrocytoma, low grade [Unknown]
  - Intracranial pressure increased [Unknown]
  - Liver function test abnormal [Recovered/Resolved]
  - Alanine aminotransferase increased [Unknown]
  - Aspartate aminotransferase increased [Unknown]
  - Headache [Not Recovered/Not Resolved]
  - Papilloedema [Not Recovered/Not Resolved]
  - Fatigue [Unknown]
  - Decreased appetite [Unknown]
  - Vomiting [Unknown]
  - Upper-airway cough syndrome [Unknown]
  - Rhinitis allergic [Unknown]
